FAERS Safety Report 8116126-5 (Version None)
Quarter: 2012Q1

REPORT INFORMATION
  Report Type: 
  Country: None (occurrence: None)
  Receive Date: 20120206
  Receipt Date: 20120130
  Transmission Date: 20120608
  Serious: Yes (Hospitalization)
  Sender: FDA-Public Use
  Company Number: FR-B.I. PHARMACEUTICALS,INC./RIDGEFIELD-2012-FF-00133FF

PATIENT
  Sex: Female

DRUGS (7)
  1. BACLOFEN [Concomitant]
     Dosage: 40 MG
  2. LYRICA [Concomitant]
     Dosage: 150 MG
     Route: 048
  3. ACETAMINOPHEN [Concomitant]
     Dosage: 3 G
     Route: 048
  4. FLUTICASONE PROPIONATE/SALMETEROL [Concomitant]
     Indication: CHRONIC OBSTRUCTIVE PULMONARY DISEASE
  5. PRADAXA [Suspect]
     Dosage: 220 MG
     Route: 048
     Dates: end: 20120129
  6. RABEPRAZOLE SODIUM [Concomitant]
  7. VENLAFAXINE [Concomitant]
     Dosage: 75 MG

REACTIONS (1)
  - FALL [None]
